FAERS Safety Report 8885807 (Version 2)
Quarter: 2012Q4

REPORT INFORMATION
  Report Type: 
  Country: IT (occurrence: IT)
  Receive Date: 20121102
  Receipt Date: 20121108
  Transmission Date: 20130627
  Serious: Yes (Hospitalization)
  Sender: FDA-Public Use
  Company Number: IT-PFIZER INC-2012272279

PATIENT
  Age: 62 Year
  Sex: Male

DRUGS (2)
  1. XANAX [Suspect]
     Dosage: 2.5 DF, total
     Route: 048
     Dates: start: 20121023, end: 20121023
  2. LAROXYL [Suspect]
     Indication: DRUG ABUSE
     Dosage: 3 DF, total
     Route: 048
     Dates: start: 20121023, end: 20121023

REACTIONS (2)
  - Drug abuse [Recovering/Resolving]
  - Suicide attempt [Recovering/Resolving]
